FAERS Safety Report 7922684-3 (Version None)
Quarter: 2011Q4

REPORT INFORMATION
  Report Type: 
  Country: None (occurrence: None)
  Receive Date: 20111117
  Receipt Date: 20110315
  Transmission Date: 20120403
  Serious: No
  Sender: FDA-Public Use
  Company Number: US-ALLERGAN-1103700US

PATIENT
  Age: 72 Year
  Sex: Female

DRUGS (3)
  1. TRAVATAN [Concomitant]
     Indication: GLAUCOMA
     Dosage: UNK
  2. COMBIGAN [Suspect]
     Indication: GLAUCOMA
     Dosage: 1 GTT, BID
     Route: 047
     Dates: start: 20100430, end: 20110302
  3. ALPHAGAN [Suspect]
     Indication: GLAUCOMA
     Dosage: UNK
     Dates: start: 20110302, end: 20110316

REACTIONS (3)
  - PSORIASIS [None]
  - EYE ALLERGY [None]
  - EYE IRRITATION [None]
